FAERS Safety Report 9719470 (Version 3)
Quarter: 2013Q4

REPORT INFORMATION
  Report Type: Report from Study
  Country: CA (occurrence: CA)
  Receive Date: 20131128
  Receipt Date: 20131221
  Transmission Date: 20140711
  Serious: Yes (Other)
  Sender: FDA-Public Use
  Company Number: CA-ROCHE-1306783

PATIENT
  Age: 56 Year
  Sex: Female

DRUGS (2)
  1. AVASTIN [Suspect]
     Indication: GLIOBLASTOMA
     Route: 042
     Dates: start: 20131105, end: 20131119
  2. KEPPRA [Concomitant]

REACTIONS (4)
  - Apraxia [Recovering/Resolving]
  - Diarrhoea [Unknown]
  - Cough [Not Recovered/Not Resolved]
  - General physical health deterioration [Unknown]
